FAERS Safety Report 23214903 (Version 1)
Quarter: 2023Q4

REPORT INFORMATION
  Report Type: Report from Study
  Country: US (occurrence: US)
  Receive Date: 20231122
  Receipt Date: 20231122
  Transmission Date: 20240109
  Serious: Yes (Other)
  Sender: FDA-Public Use
  Company Number: US-BSC-2023000092

PATIENT
  Sex: Female

DRUGS (1)
  1. VARITHENA [Suspect]
     Active Substance: POLIDOCANOL
     Indication: Product used for unknown indication

REACTIONS (4)
  - Peripheral artery occlusion [Unknown]
  - Limb injury [Unknown]
  - Product administered at inappropriate site [Unknown]
  - Product administered to patient of inappropriate age [Unknown]
